FAERS Safety Report 26058836 (Version 1)
Quarter: 2025Q4

REPORT INFORMATION
  Report Type: Spontaneous
  Country: US (occurrence: None)
  Receive Date: 20251117
  Receipt Date: 20251117
  Transmission Date: 20260119
  Serious: Yes (Hospitalization, Other)
  Sender: FDA-CTU
  Company Number: None

PATIENT
  Sex: Female

DRUGS (3)
  1. CYANOCOBALAMIN\NALTREXONE\TOPIRAMATE [Suspect]
     Active Substance: CYANOCOBALAMIN\NALTREXONE\TOPIRAMATE
     Indication: Weight decreased
     Dosage: QOD ORAL?
     Route: 048
  2. BUPROPION [Concomitant]
     Active Substance: BUPROPION
  3. METFORMIN [Suspect]
     Active Substance: METFORMIN HYDROCHLORIDE

REACTIONS (1)
  - Hospitalisation [None]
